FAERS Safety Report 22594731 (Version 1)
Quarter: 2023Q2

REPORT INFORMATION
  Report Type: Spontaneous
  Country: None (occurrence: RU)
  Receive Date: 20230613
  Receipt Date: 20230613
  Transmission Date: 20230721
  Serious: Yes (Hospitalization)
  Sender: FDA-Public Use
  Company Number: RU-B.Braun Medical Inc.-2142643

PATIENT
  Age: 50 Year
  Sex: Female
  Weight: 84 kg

DRUGS (2)
  1. SODIUM CHLORIDE [Suspect]
     Active Substance: SODIUM CHLORIDE
     Indication: Product used for unknown indication
     Route: 042
  2. CEFAZOLIN [Suspect]
     Active Substance: CEFAZOLIN

REACTIONS (3)
  - Hyperaemia [Recovered/Resolved]
  - Rash [Recovered/Resolved]
  - Blood pressure decreased [Recovered/Resolved]
